FAERS Safety Report 6334776-3 (Version None)
Quarter: 2009Q3

REPORT INFORMATION
  Report Type: 
  Country: None (occurrence: None)
  Receive Date: 20090831
  Receipt Date: 20090826
  Transmission Date: 20100115
  Serious: Yes (Death)
  Sender: FDA-Public Use
  Company Number: PHHY2009JP35021

PATIENT
  Sex: Male
  Weight: 56 kg

DRUGS (8)
  1. VOLTAREN [Suspect]
     Indication: PYREXIA
     Dosage: 12.5 MG, ONCE/SINGLE
     Route: 054
     Dates: start: 20090812
  2. MAXIPIME [Suspect]
     Indication: PLEURISY
     Dosage: 1 G/DAY
     Route: 042
     Dates: start: 20090812
  3. PAZUCROSS [Concomitant]
     Indication: PLEURISY
     Dosage: 300 MG, UNK
     Route: 042
     Dates: start: 20090812
  4. MAGMITT [Concomitant]
     Indication: CONSTIPATION
     Dosage: 750 MG, UNK
     Route: 048
     Dates: start: 20090811
  5. NERIPROCT [Concomitant]
     Indication: HAEMORRHOIDS
     Dosage: 2 DF, UNK
     Route: 054
     Dates: start: 20090811
  6. PRIMPERAN [Concomitant]
     Indication: VOMITING
     Dosage: 10 MG, UNK
     Route: 042
     Dates: start: 20090812
  7. GASTER [Concomitant]
     Indication: VOMITING
     Dosage: 10 MG, UNK
     Route: 042
     Dates: start: 20090812
  8. CELESTAMINE TAB [Concomitant]
     Indication: RASH
     Dosage: 3 DF, UNK
     Route: 048
     Dates: start: 20090811

REACTIONS (13)
  - BLOOD BILIRUBIN INCREASED [None]
  - BLOOD CREATININE INCREASED [None]
  - BLOOD GLUCOSE INCREASED [None]
  - BLOOD PRESSURE DECREASED [None]
  - BLOOD UREA INCREASED [None]
  - DYSPNOEA [None]
  - GAMMA-GLUTAMYLTRANSFERASE INCREASED [None]
  - HEART RATE DECREASED [None]
  - LYMPHOCYTE PERCENTAGE DECREASED [None]
  - NEUTROPHIL PERCENTAGE INCREASED [None]
  - RESPIRATORY ARREST [None]
  - SHOCK [None]
  - WHITE BLOOD CELL COUNT INCREASED [None]
